FAERS Safety Report 6915847-7 (Version None)
Quarter: 2010Q3

REPORT INFORMATION
  Report Type: 
  Country: None (occurrence: None)
  Receive Date: 20100810
  Receipt Date: 20100802
  Transmission Date: 20110219
  Serious: Yes (Other)
  Sender: FDA-Public Use
  Company Number: US-BAYER-201012547NA

PATIENT
  Age: 55 Year
  Sex: Female
  Weight: 103 kg

DRUGS (25)
  1. MAGNEVIST [Suspect]
     Indication: DIAGNOSTIC PROCEDURE
  2. OMNISCAN [Suspect]
     Indication: DIAGNOSTIC PROCEDURE
  3. OPTIMARK [Suspect]
     Indication: DIAGNOSTIC PROCEDURE
  4. MULTIHANCE [Suspect]
     Indication: DIAGNOSTIC PROCEDURE
  5. PROHANCE [Suspect]
     Indication: DIAGNOSTIC PROCEDURE
  6. UNSPECIFIED GADOLINIUM CONTRAST BASED AGENT [Suspect]
     Indication: NUCLEAR MAGNETIC RESONANCE IMAGING
  7. ALLEGRA [Concomitant]
  8. VOLTAREN [Concomitant]
  9. SINGULAIR [Concomitant]
  10. SYNTHROID [Concomitant]
  11. PROVENTIL [Concomitant]
  12. NORCO [Concomitant]
  13. LYRICA [Concomitant]
  14. FLEXERIL [Concomitant]
  15. NITROLINGUAL [Concomitant]
  16. IMDUR [Concomitant]
  17. COREG [Concomitant]
  18. SYMBICORT [Concomitant]
  19. NORVASC [Concomitant]
  20. VITAMIN B-12 [Concomitant]
  21. B 1 [Concomitant]
  22. VITAMIN D [Concomitant]
  23. CENTRUM (WITH IRON) [Concomitant]
     Indication: ROUTINE HEALTH MAINTENANCE
     Dates: start: 20040101
  24. FOLIC ACID [Concomitant]
  25. PREDNISONE [Concomitant]
     Indication: ASTHMA
     Dates: start: 20070101, end: 20070701

REACTIONS (22)
  - ACTIVITIES OF DAILY LIVING IMPAIRED [None]
  - ARTHRALGIA [None]
  - ASTHENIA [None]
  - BACK PAIN [None]
  - BURNING SENSATION [None]
  - DEFORMITY [None]
  - GROIN PAIN [None]
  - HYPOAESTHESIA [None]
  - JOINT RANGE OF MOTION DECREASED [None]
  - MOTOR DYSFUNCTION [None]
  - MUSCLE TIGHTNESS [None]
  - MUSCULOSKELETAL STIFFNESS [None]
  - NEPHROGENIC SYSTEMIC FIBROSIS [None]
  - OEDEMA PERIPHERAL [None]
  - PAIN [None]
  - PARAESTHESIA [None]
  - PRURITUS GENERALISED [None]
  - SKIN DISCOLOURATION [None]
  - SKIN FIBROSIS [None]
  - SKIN HYPERTROPHY [None]
  - SKIN INDURATION [None]
  - SKIN TIGHTNESS [None]
